FAERS Safety Report 22317197 (Version 1)
Quarter: 2023Q2

REPORT INFORMATION
  Report Type: Spontaneous
  Country: US (occurrence: US)
  Receive Date: 20230514
  Receipt Date: 20230514
  Transmission Date: 20230721
  Serious: No
  Sender: FDA-Public Use
  Company Number: US-BAUSCHBL-2023BNL003174

PATIENT
  Age: 86 Year
  Sex: Male
  Weight: 64.468 kg

DRUGS (1)
  1. ALAWAY PRESERVATIVE FREE [Suspect]
     Active Substance: KETOTIFEN FUMARATE
     Indication: Lacrimation increased
     Dosage: 1 DROP IN EACH EYE
     Route: 047
     Dates: start: 2023

REACTIONS (3)
  - Product use complaint [Unknown]
  - Prescribed underdose [Unknown]
  - Drug ineffective [Unknown]
